FAERS Safety Report 8831270 (Version 1)
Quarter: 2012Q4

REPORT INFORMATION
  Report Type: 
  Country: CN (occurrence: CN)
  Receive Date: 20121008
  Receipt Date: 20121008
  Transmission Date: 20130627
  Serious: Yes (Hospitalization, Other)
  Sender: FDA-Public Use
  Company Number: CN-NOVEN-12CN005426

PATIENT
  Age: 49 Year
  Sex: Male

DRUGS (9)
  1. LITHIUM CARBONATE [Suspect]
     Indication: BIPOLAR DISORDER
     Dosage: 600 mg, evening
     Route: 048
  2. LITHIUM CARBONATE [Suspect]
     Dosage: 400 mg, morning
     Route: 048
  3. ASPIRIN [Concomitant]
     Indication: CARDIOMYOPATHY
  4. ACERTIL [Concomitant]
     Indication: CARDIOMYOPATHY
  5. CARVEDILOL [Concomitant]
     Indication: CARDIOMYOPATHY
  6. FUROSEMIDE [Concomitant]
     Indication: CARDIOMYOPATHY
  7. ALDACTONE                          /00006201/ [Concomitant]
     Indication: CARDIOMYOPATHY
  8. TRIFLUOPERAZINE [Concomitant]
     Indication: BIPOLAR DISORDER
  9. TRIHEXYPHENIDYL [Concomitant]
     Indication: BIPOLAR DISORDER

REACTIONS (11)
  - Neuropathy peripheral [Recovered/Resolved]
  - Metabolic encephalopathy [Recovered/Resolved]
  - Toxicity to various agents [Recovered/Resolved]
  - Confusional state [Recovered/Resolved]
  - Coma [Recovered/Resolved]
  - Body temperature increased [Unknown]
  - Blood sodium increased [Recovered/Resolved]
  - Cognitive disorder [Recovered/Resolved]
  - Muscular weakness [Recovered/Resolved]
  - Nephrogenic diabetes insipidus [Recovered/Resolved]
  - Gait disturbance [Recovered/Resolved]
